FAERS Safety Report 9469792 (Version 1)
Quarter: 2013Q3

REPORT INFORMATION
  Report Type: Spontaneous
  Country: US (occurrence: US)
  Receive Date: 20130822
  Receipt Date: 20130822
  Transmission Date: 20140515
  Serious: Yes (Other)
  Sender: FDA-Public Use
  Company Number: US-JNJFOC-20130807181

PATIENT
  Sex: Male

DRUGS (4)
  1. REMICADE [Suspect]
     Indication: CROHN^S DISEASE
     Dosage: 2ND INFUSION
     Route: 042
     Dates: start: 20130812
  2. REMICADE [Suspect]
     Indication: CROHN^S DISEASE
     Dosage: 1ST INFUSION
     Route: 042
     Dates: start: 20130731
  3. REMICADE [Suspect]
     Indication: COLITIS ULCERATIVE
     Dosage: 2ND INFUSION
     Route: 042
     Dates: start: 20130812
  4. REMICADE [Suspect]
     Indication: COLITIS ULCERATIVE
     Dosage: 1ST INFUSION
     Route: 042
     Dates: start: 20130731

REACTIONS (2)
  - Haemorrhage [Unknown]
  - Haemoglobin decreased [Not Recovered/Not Resolved]
